FAERS Safety Report 15628229 (Version 2)
Quarter: 2018Q4

REPORT INFORMATION
  Report Type: Report from Study
  Country: US (occurrence: US)
  Receive Date: 20181116
  Receipt Date: 20181207
  Transmission Date: 20190205
  Serious: Yes (Other)
  Sender: FDA-Public Use
  Company Number: US-UCBSA-2018050346

PATIENT
  Sex: Male

DRUGS (7)
  1. LEVETIRACETAM. [Concomitant]
     Active Substance: LEVETIRACETAM
     Indication: FOCAL DYSCOGNITIVE SEIZURES
     Dosage: 2000 MG, 2X/DAY (BID)
     Dates: start: 201706
  2. TAMSULOSIN [Concomitant]
     Active Substance: TAMSULOSIN
     Indication: PRODUCT USED FOR UNKNOWN INDICATION
  3. LACOSAMIDE. [Suspect]
     Active Substance: LACOSAMIDE
     Indication: SEIZURE
     Dosage: 250 MG, 2X/DAY (BID) (200MG  TABLET +50 MG TABLET)
     Route: 048
  4. MULTIVITAMIN [Concomitant]
     Active Substance: VITAMINS
     Indication: PRODUCT USED FOR UNKNOWN INDICATION
  5. LACOSAMIDE. [Suspect]
     Active Substance: LACOSAMIDE
     Indication: FOCAL DYSCOGNITIVE SEIZURES
  6. KEPPRA [Suspect]
     Active Substance: LEVETIRACETAM
     Indication: SEIZURE
     Dosage: 2000 MG, 2X/DAY (BID)
     Route: 048
  7. LAMOTRIGINE. [Concomitant]
     Active Substance: LAMOTRIGINE
     Indication: PRODUCT USED FOR UNKNOWN INDICATION
     Dosage: 200 MG, 2X/DAY (BID)

REACTIONS (6)
  - Seizure [Unknown]
  - Memory impairment [Unknown]
  - Off label use [Unknown]
  - White blood cell count decreased [Unknown]
  - Mental impairment [Unknown]
  - Overdose [Unknown]
